FAERS Safety Report 6482540-7 (Version None)
Quarter: 2009Q4

REPORT INFORMATION
  Report Type: 
  Country: None (occurrence: None)
  Receive Date: 20091208
  Receipt Date: 20091020
  Transmission Date: 20100525
  Serious: No
  Sender: FDA-Public Use
  Company Number: US-AMGEN-KDL370298

PATIENT
  Sex: Female
  Weight: 70.4 kg

DRUGS (6)
  1. ENBREL [Suspect]
     Indication: RHEUMATOID ARTHRITIS
     Route: 058
     Dates: start: 20030101
  2. PREDNISONE [Concomitant]
     Dates: start: 20030101
  3. ALEVE [Concomitant]
     Dates: start: 20030101
  4. MINOCYCLINE [Concomitant]
     Dates: start: 20030101
  5. LIPITOR [Concomitant]
  6. GABAPENTIN [Concomitant]

REACTIONS (2)
  - CONTUSION [None]
  - INJECTION SITE HAEMATOMA [None]
